FAERS Safety Report 4374316-1 (Version None)
Quarter: 2004Q2

REPORT INFORMATION
  Report Type: 
  Country: None (occurrence: None)
  Receive Date: 20040604
  Receipt Date: 20040521
  Transmission Date: 20050107
  Serious: No
  Sender: FDA-Public Use
  Company Number: CERZ-10582

PATIENT
  Age: 18 Year
  Sex: Female
  Weight: 65 kg

DRUGS (2)
  1. CEREZYME [Suspect]
     Indication: GAUCHER'S DISEASE
     Dosage: 4000 UNITS Q2WKS IV
     Route: 042
     Dates: start: 19961107
  2. SOLU-CORTEF [Concomitant]

REACTIONS (2)
  - ABORTION SPONTANEOUS [None]
  - DRUG EXPOSURE DURING PREGNANCY [None]
